FAERS Safety Report 24889837 (Version 1)
Quarter: 2025Q1

REPORT INFORMATION
  Report Type: Spontaneous
  Country: US (occurrence: None)
  Receive Date: 20250124
  Receipt Date: 20250124
  Transmission Date: 20250409
  Serious: Yes (Other)
  Sender: FDA-CTU
  Company Number: None

PATIENT
  Age: 74 Year

DRUGS (1)
  1. CLINDAMYCIN [Suspect]
     Active Substance: CLINDAMYCIN
     Indication: Antibiotic prophylaxis
     Dates: start: 20241015, end: 20241016

REACTIONS (3)
  - Periorbital swelling [None]
  - Pruritus [None]
  - Chest discomfort [None]

NARRATIVE: CASE EVENT DATE: 20241016
